FAERS Safety Report 12983425 (Version 1)
Quarter: 2016Q4

REPORT INFORMATION
  Report Type: Spontaneous
  Country: US (occurrence: US)
  Receive Date: 20161129
  Receipt Date: 20161129
  Transmission Date: 20170207
  Serious: Yes (Other)
  Sender: FDA-Public Use
  Company Number: US-SA-2016SA214305

PATIENT
  Sex: Female

DRUGS (3)
  1. ANTI-THYMOCYTE GLOBULIN (RABBIT) [Suspect]
     Active Substance: LAPINE T-LYMPHOCYTE IMMUNE GLOBULIN
     Indication: IMMUNOMODULATORY THERAPY
     Route: 065
  2. IMATINIB [Suspect]
     Active Substance: IMATINIB
     Indication: IMMUNOMODULATORY THERAPY
     Route: 065
  3. MEPOLIZUMAB [Suspect]
     Active Substance: MEPOLIZUMAB
     Indication: IMMUNOMODULATORY THERAPY
     Route: 065

REACTIONS (1)
  - Ischaemic stroke [Recovered/Resolved]
